FAERS Safety Report 5322564-6 (Version None)
Quarter: 2007Q2

REPORT INFORMATION
  Report Type: 
  Country: None (occurrence: None)
  Receive Date: 20070511
  Receipt Date: 20070504
  Transmission Date: 20071010
  Serious: Yes (Disabling, Other)
  Sender: FDA-Public Use
  Company Number: BR-ASTRAZENECA-2006UW18700

PATIENT
  Age: 63 Year
  Sex: Male
  Weight: 97 kg

DRUGS (2)
  1. ZOLADEX [Suspect]
     Indication: PROSTATE CANCER
     Dosage: TOOK OVER TWO YEARS
     Route: 058
  2. ZOSTRIX [Concomitant]

REACTIONS (18)
  - ALOPECIA [None]
  - ANKLE FRACTURE [None]
  - BACK PAIN [None]
  - BALANCE DISORDER [None]
  - BLOOD PRESSURE INCREASED [None]
  - DYSGEUSIA [None]
  - GAIT DISTURBANCE [None]
  - HEADACHE [None]
  - HOT FLUSH [None]
  - INSOMNIA [None]
  - LIBIDO DECREASED [None]
  - METASTASES TO BONE [None]
  - PANIC DISORDER [None]
  - PROSTATITIS [None]
  - SKIN DISCOLOURATION [None]
  - URETHRAL DISORDER [None]
  - URINARY TRACT PAIN [None]
  - WEIGHT INCREASED [None]
